FAERS Safety Report 5402333-9 (Version None)
Quarter: 2007Q3

REPORT INFORMATION
  Report Type: 
  Country: None (occurrence: None)
  Receive Date: 20070730
  Receipt Date: 20070730
  Transmission Date: 20080115
  Serious: Yes (Other)
  Sender: FDA-Public Use
  Company Number: None

PATIENT
  Age: 55 Year
  Sex: Female
  Weight: 83.9154 kg

DRUGS (1)
  1. GABAPENTIN 600 MGS. ACTAVIS [Suspect]
     Indication: CEREBRAL SARCOIDOSIS
     Dosage: 600 MGS 3 X DAY PO
     Route: 048
     Dates: start: 20070726, end: 20070727

REACTIONS (4)
  - DISORIENTATION [None]
  - HEADACHE [None]
  - NAUSEA [None]
  - REACTION TO DRUG EXCIPIENTS [None]
